FAERS Safety Report 8488271-6 (Version None)
Quarter: 2012Q3

REPORT INFORMATION
  Report Type: 
  Country: None (occurrence: None)
  Receive Date: 20120705
  Receipt Date: 20120704
  Transmission Date: 20120928
  Serious: Yes (Life-Threatening, Hospitalization)
  Sender: FDA-Public Use
  Company Number: PL-PFIZER INC-2009162513

PATIENT
  Age: 58 Year
  Sex: Male
  Weight: 103 kg

DRUGS (7)
  1. POTASSIUM CHLORIDE [Concomitant]
     Dosage: UNK
     Route: 048
     Dates: start: 20040101
  2. METOPROLOL TARTRATE [Concomitant]
     Dosage: UNK
     Route: 048
     Dates: start: 20040101, end: 20090127
  3. RAMIPRIL [Concomitant]
     Dosage: UNK
     Route: 048
     Dates: start: 20080818
  4. AXITINIB [Suspect]
     Indication: THYROID CANCER
     Dosage: 3 MG, 2X/DAY
     Route: 048
     Dates: start: 20080829, end: 20090127
  5. LEVOTHYROXINE [Concomitant]
     Dosage: UNK
     Route: 048
     Dates: start: 20050101
  6. AMLODIPINE [Concomitant]
     Dosage: UNK
     Route: 048
     Dates: start: 20080912, end: 20090127
  7. INDAPAMIDE [Concomitant]
     Dosage: UNK
     Route: 048
     Dates: start: 20040101, end: 20090127

REACTIONS (1)
  - MYOCARDIAL INFARCTION [None]
